FAERS Safety Report 7373405-7 (Version None)
Quarter: 2011Q1

REPORT INFORMATION
  Report Type: 
  Country: None (occurrence: None)
  Receive Date: 20110325
  Receipt Date: 20110314
  Transmission Date: 20110831
  Serious: Yes (Hospitalization, Other)
  Sender: FDA-Public Use
  Company Number: US-BAYER-2011-022888

PATIENT
  Sex: Male

DRUGS (2)
  1. AVELOX [Suspect]
     Indication: APPENDICITIS PERFORATED
     Dosage: DAILY DOSE 400 MG
     Route: 048
     Dates: start: 20110310, end: 20110312
  2. AVELOX [Suspect]
     Indication: APPENDICITIS PERFORATED
     Dosage: UNK
     Route: 042
     Dates: end: 20110301

REACTIONS (1)
  - MUSCULOSKELETAL PAIN [None]
